FAERS Safety Report 18661249 (Version 1)
Quarter: 2020Q4

REPORT INFORMATION
  Report Type: Spontaneous
  Country: FR (occurrence: FR)
  Receive Date: 20201224
  Receipt Date: 20201224
  Transmission Date: 20210114
  Serious: Yes (Hospitalization)
  Sender: FDA-Public Use
  Company Number: FR-TEVA-2020-FR-1860783

PATIENT
  Age: 47 Year
  Sex: Male

DRUGS (5)
  1. RITUXIMAB ((MAMMIFERE/HAMSTER/CELLULES CHO)) [Suspect]
     Active Substance: RITUXIMAB
     Indication: LYMPHOMA
     Dosage: 1 COURSE OF RITUXIMAB EVERY 2 MONTHS
     Route: 042
     Dates: start: 201812
  2. COUMADINE [Concomitant]
     Active Substance: WARFARIN SODIUM
     Route: 048
  3. DOXORUBICINE [Suspect]
     Active Substance: DOXORUBICIN
     Indication: LYMPHOMA
     Dosage: 3 OU 4 CURES
     Route: 042
     Dates: start: 201802, end: 2019
  4. CYCLOPHOSPHAMIDE. [Suspect]
     Active Substance: CYCLOPHOSPHAMIDE
     Indication: LYMPHOMA
     Dosage: 3 OU 4 CURES
     Route: 042
     Dates: start: 201812, end: 2019
  5. VINCRISTINE (SULFATE DE) [Suspect]
     Active Substance: VINCRISTINE SULFATE
     Indication: LYMPHOMA
     Dosage: 3 OR 4 CURES
     Route: 042
     Dates: start: 201812, end: 2019

REACTIONS (1)
  - Ejection fraction decreased [Not Recovered/Not Resolved]

NARRATIVE: CASE EVENT DATE: 202011
